FAERS Safety Report 6213515-0 (Version None)
Quarter: 2009Q2

REPORT INFORMATION
  Report Type: 
  Country: None (occurrence: None)
  Receive Date: 20090603
  Receipt Date: 20090522
  Transmission Date: 20091009
  Serious: Yes (Other)
  Sender: FDA-Public Use
  Company Number: JP-PFIZER INC-2009201408

PATIENT
  Age: 77 Year

DRUGS (5)
  1. ZYVOX [Suspect]
     Indication: STAPHYLOCOCCAL SEPSIS
     Dosage: 600 MG, 2X/DAY
     Route: 041
     Dates: start: 20090227, end: 20090309
  2. ZYVOX [Suspect]
     Dosage: 600 MG, 1X/DAY
     Route: 041
     Dates: start: 20090403, end: 20090403
  3. ZYVOX [Suspect]
     Dosage: 600 MG, 2X/DAY
     Route: 041
     Dates: start: 20090404, end: 20090412
  4. ZYVOX [Suspect]
     Dosage: 600 MG, 1X/DAY
     Route: 041
     Dates: start: 20090413, end: 20090413
  5. AMIKACIN SULFATE [Concomitant]
     Dosage: UNK
     Dates: start: 20090301

REACTIONS (1)
  - HYPONATRAEMIA [None]
